FAERS Safety Report 5634367-3 (Version None)
Quarter: 2008Q1

REPORT INFORMATION
  Report Type: 
  Country: None (occurrence: None)
  Receive Date: 20080222
  Receipt Date: 20080122
  Transmission Date: 20080703
  Serious: No
  Sender: FDA-Public Use
  Company Number: US-BAYER-200812465NA

PATIENT
  Sex: Female

DRUGS (2)
  1. MIRENA [Suspect]
     Indication: DRUG USE FOR UNKNOWN INDICATION
     Route: 015
     Dates: start: 20080122
  2. MOTRIN [Concomitant]
     Indication: ABDOMINAL PAIN

REACTIONS (2)
  - IUCD COMPLICATION [None]
  - PROCEDURAL PAIN [None]
